FAERS Safety Report 15106333 (Version 2)
Quarter: 2018Q3

REPORT INFORMATION
  Report Type: Spontaneous
  Country: IT (occurrence: IT)
  Receive Date: 20180704
  Receipt Date: 20180813
  Transmission Date: 20181010
  Serious: Yes (Other)
  Sender: FDA-Public Use
  Company Number: IT-PFIZER INC-2018265854

PATIENT
  Age: 25 Year
  Sex: Male

DRUGS (1)
  1. IDARUBICIN HCL [Suspect]
     Active Substance: IDARUBICIN HYDROCHLORIDE
     Indication: ACUTE PROMYELOCYTIC LEUKAEMIA
     Dosage: UNK (CUMULATIVE DOSE }90 MG/M2)

REACTIONS (2)
  - Left ventricular dilatation [Recovering/Resolving]
  - Ventricular dysfunction [Recovering/Resolving]
